FAERS Safety Report 12854305 (Version 2)
Quarter: 2016Q4

REPORT INFORMATION
  Report Type: Other
  Country: US (occurrence: US)
  Receive Date: 20161017
  Receipt Date: 20161021
  Transmission Date: 20170207
  Serious: No
  Sender: FDA-Public Use
  Company Number: US-UNITED THERAPEUTICS-UNT-2016-015872

PATIENT
  Age: 45 Year
  Sex: Female
  Weight: 208.62 kg

DRUGS (2)
  1. ADEMPAS [Concomitant]
     Active Substance: RIOCIGUAT
     Indication: PRODUCT USED FOR UNKNOWN INDICATION
  2. TYVASO [Suspect]
     Active Substance: TREPROSTINIL
     Indication: PULMONARY HYPERTENSION
     Dosage: 18-54 ?G, QID
     Dates: start: 20161003

REACTIONS (12)
  - Oxygen saturation decreased [Unknown]
  - Headache [Unknown]
  - Dizziness [Unknown]
  - Peripheral swelling [Unknown]
  - Confusional state [Unknown]
  - Influenza like illness [Unknown]
  - Oropharyngeal pain [Unknown]
  - Dyspnoea [Unknown]
  - Chest pain [Unknown]
  - Pain [Unknown]
  - Cough [Unknown]
  - Syncope [Unknown]

NARRATIVE: CASE EVENT DATE: 201610
